FAERS Safety Report 10445733 (Version 1)
Quarter: 2014Q3

REPORT INFORMATION
  Report Type: Report from Study
  Country: US (occurrence: US)
  Receive Date: 20140910
  Receipt Date: 20140910
  Transmission Date: 20150326
  Serious: Yes (Hospitalization, Other)
  Sender: FDA-Public Use
  Company Number: US-ABBVIE-14K-163-1280630-00

PATIENT
  Sex: Male
  Weight: 99.88 kg

DRUGS (6)
  1. JANUMET [Concomitant]
     Active Substance: METFORMIN HYDROCHLORIDE\SITAGLIPTIN PHOSPHATE
     Indication: DIABETES MELLITUS
  2. CELEBREX [Concomitant]
     Active Substance: CELECOXIB
     Indication: ARTHRITIS
  3. AMBIEN [Concomitant]
     Active Substance: ZOLPIDEM TARTRATE
     Indication: INSOMNIA
  4. ANALGESICS [Suspect]
     Active Substance: UNSPECIFIED INGREDIENT
     Indication: SURGERY
     Route: 042
     Dates: start: 201310, end: 201310
  5. HUMIRA [Suspect]
     Active Substance: ADALIMUMAB
     Indication: PSORIATIC ARTHROPATHY
     Route: 058
     Dates: end: 201404
  6. LISINOPRIL. [Concomitant]
     Active Substance: LISINOPRIL
     Indication: HYPERTENSION

REACTIONS (7)
  - Gout [Not Recovered/Not Resolved]
  - Psoriasis [Unknown]
  - Back disorder [Unknown]
  - Pain in extremity [Recovered/Resolved]
  - Nodule [Unknown]
  - Blood pressure decreased [Recovered/Resolved]
  - Sciatica [Recovered/Resolved]

NARRATIVE: CASE EVENT DATE: 2011
